FAERS Safety Report 5842086-3 (Version None)
Quarter: 2008Q3

REPORT INFORMATION
  Report Type: 
  Country: None (occurrence: None)
  Receive Date: 20080731
  Receipt Date: 20080618
  Transmission Date: 20090109
  Serious: No
  Sender: FDA-Public Use
  Company Number: US200806004404

PATIENT
  Age: 55 Year
  Sex: Female
  Weight: 68 kg

DRUGS (8)
  1. BYETTA [Suspect]
     Indication: INSULIN-REQUIRING TYPE 2 DIABETES MELLITUS
     Dosage: 5 UG, 2/D, SUBCUTANEOUS; 10 UG 2/D SUBCUTANEOUS; 10 UG 2/D SUBCUTANEOUS; 5 UG 2/D SUBCUTANEOUS
     Route: 058
     Dates: start: 20050101, end: 20050101
  2. BYETTA [Suspect]
     Indication: INSULIN-REQUIRING TYPE 2 DIABETES MELLITUS
     Dosage: 5 UG, 2/D, SUBCUTANEOUS; 10 UG 2/D SUBCUTANEOUS; 10 UG 2/D SUBCUTANEOUS; 5 UG 2/D SUBCUTANEOUS
     Route: 058
     Dates: start: 20050101, end: 20070101
  3. BYETTA [Suspect]
     Indication: INSULIN-REQUIRING TYPE 2 DIABETES MELLITUS
     Dosage: 5 UG, 2/D, SUBCUTANEOUS; 10 UG 2/D SUBCUTANEOUS; 10 UG 2/D SUBCUTANEOUS; 5 UG 2/D SUBCUTANEOUS
     Route: 058
     Dates: start: 20080501, end: 20080501
  4. BYETTA [Suspect]
     Indication: INSULIN-REQUIRING TYPE 2 DIABETES MELLITUS
     Dosage: 5 UG, 2/D, SUBCUTANEOUS; 10 UG 2/D SUBCUTANEOUS; 10 UG 2/D SUBCUTANEOUS; 5 UG 2/D SUBCUTANEOUS
     Route: 058
     Dates: start: 20080501
  5. EXENATIDE 5MCG PEN, DISPOSABLE DEVICE (EXENATIDE PEN (5MCG)) PEN, DISP [Concomitant]
  6. GLYBURIDE AND METFORMIN HCL [Concomitant]
  7. DRUG USED IN DIABETES [Concomitant]
  8. LANTUS [Concomitant]

REACTIONS (5)
  - ABDOMINAL DISTENSION [None]
  - CONSTIPATION [None]
  - NAUSEA [None]
  - VOMITING [None]
  - WEIGHT INCREASED [None]
